FAERS Safety Report 8778953 (Version 2)
Quarter: 2013Q1

REPORT INFORMATION
  Report Type: Spontaneous
  Country: RU (occurrence: RU)
  Receive Date: 20120912
  Receipt Date: 20130215
  Transmission Date: 20140127
  Serious: Yes (Other)
  Sender: FDA-Public Use
  Company Number: RU-JNJFOC-20120610775

PATIENT
  Age: 22 Year
  Sex: Female
  Weight: 63 kg

DRUGS (5)
  1. PREZISTA [Suspect]
     Indication: HIV INFECTION
     Dosage: 1 COURSE
     Route: 048
     Dates: start: 20101120
  2. AZIDOTHYMIDINE [Concomitant]
     Indication: HIV INFECTION
     Route: 048
     Dates: start: 20101120
  3. ZIDOVUDINE [Concomitant]
     Indication: HIV INFECTION
     Route: 048
     Dates: start: 20101120
  4. NORVIR [Concomitant]
     Indication: HIV INFECTION
     Route: 048
     Dates: start: 20101120
  5. AZIDOTHYMIDINE [Concomitant]
     Indication: CHEMOTHERAPY
     Route: 042
     Dates: start: 20110819, end: 20110819

REACTIONS (2)
  - Premature delivery [Recovered/Resolved]
  - Exposure during pregnancy [Recovered/Resolved]
